FAERS Safety Report 14357409 (Version 2)
Quarter: 2018Q1

REPORT INFORMATION
  Report Type: Report from Study
  Country: US (occurrence: US)
  Receive Date: 20180105
  Receipt Date: 20180125
  Transmission Date: 20180509
  Serious: No
  Sender: FDA-Public Use
  Company Number: US-AMGEN-USASL2017186450

PATIENT
  Sex: Male

DRUGS (2)
  1. LIVALO [Concomitant]
     Active Substance: PITAVASTATIN CALCIUM
     Dosage: UNK
  2. REPATHA [Suspect]
     Active Substance: EVOLOCUMAB
     Indication: BLOOD CHOLESTEROL INCREASED
     Dosage: 140 MG, Q2WK
     Route: 065

REACTIONS (5)
  - Therapeutic response unexpected [Unknown]
  - Muscle disorder [Recovered/Resolved]
  - Accidental exposure to product [Unknown]
  - Myalgia [Recovered/Resolved]
  - Wrong technique in product usage process [Unknown]
